FAERS Safety Report 25896534 (Version 2)
Quarter: 2025Q4

REPORT INFORMATION
  Report Type: Report from Study
  Country: CN (occurrence: CN)
  Receive Date: 20251008
  Receipt Date: 20251014
  Transmission Date: 20260118
  Serious: Yes (Other)
  Sender: ROCHE
  Company Number: CN-ROCHE-10000367646

PATIENT
  Age: 50 Year
  Sex: Female
  Weight: 40.7 kg

DRUGS (16)
  1. POLATUZUMAB VEDOTIN [Suspect]
     Active Substance: POLATUZUMAB VEDOTIN
     Indication: Diffuse large B-cell lymphoma
     Route: 042
     Dates: start: 20240301, end: 20240301
  2. POLATUZUMAB VEDOTIN [Suspect]
     Active Substance: POLATUZUMAB VEDOTIN
     Route: 042
     Dates: start: 20240324, end: 20240324
  3. COLUMVI [Suspect]
     Active Substance: GLOFITAMAB-GXBM
     Indication: Diffuse large B-cell lymphoma
     Route: 042
     Dates: start: 20240428, end: 20240428
  4. COLUMVI [Suspect]
     Active Substance: GLOFITAMAB-GXBM
     Route: 042
     Dates: start: 20240506, end: 20240506
  5. RITUXIMAB [Suspect]
     Active Substance: RITUXIMAB
     Indication: Diffuse large B-cell lymphoma
     Route: 042
     Dates: start: 20240229, end: 20240229
  6. RITUXIMAB [Suspect]
     Active Substance: RITUXIMAB
     Route: 042
     Dates: start: 20240323, end: 20240323
  7. VENCLEXTA [Suspect]
     Active Substance: VENETOCLAX
     Indication: Diffuse large B-cell lymphoma
     Route: 048
     Dates: start: 20240229, end: 20240229
  8. DEXAMETHASONE [Suspect]
     Active Substance: DEXAMETHASONE
     Indication: Diffuse large B-cell lymphoma
     Route: 042
     Dates: start: 20240301, end: 20240304
  9. DEXAMETHASONE [Suspect]
     Active Substance: DEXAMETHASONE
     Route: 042
     Dates: start: 20240324, end: 20240326
  10. SELINEXOR [Suspect]
     Active Substance: SELINEXOR
     Indication: Diffuse large B-cell lymphoma
     Route: 048
     Dates: start: 20240229, end: 20240229
  11. GEMCITABINE [Suspect]
     Active Substance: GEMCITABINE
     Indication: Diffuse large B-cell lymphoma
     Route: 042
     Dates: start: 20240301, end: 20240301
  12. CISPLATIN [Suspect]
     Active Substance: CISPLATIN
     Indication: Diffuse large B-cell lymphoma
     Route: 042
     Dates: start: 20240301, end: 20240303
  13. CISPLATIN [Suspect]
     Active Substance: CISPLATIN
     Route: 042
     Dates: start: 20240324, end: 20240325
  14. BORTEZOMIB [Suspect]
     Active Substance: BORTEZOMIB
     Indication: Diffuse large B-cell lymphoma
     Route: 042
     Dates: start: 20240421, end: 20240421
  15. Entecavir tablets [Concomitant]
     Route: 048
     Dates: end: 20240428
  16. Diammonium glycyrrhizinate enteric capsule [Concomitant]

REACTIONS (2)
  - White blood cell count decreased [Recovered/Resolved]
  - Neutrophil count decreased [Recovered/Resolved]

NARRATIVE: CASE EVENT DATE: 20240429
